FAERS Safety Report 7615069 (Version 3)
Quarter: 2013Q2

REPORT INFORMATION
  Report Type: Spontaneous
  Country: US (occurrence: US)
  Receive Date: 20101002
  Receipt Date: 20130419
  Transmission Date: 20140414
  Serious: Yes (Other)
  Sender: FDA-Public Use
  Company Number: US-ROXANE LABORATORIES, INC.-2010-RO-01269RO

PATIENT
  Sex: Male

DRUGS (1)
  1. FLUTICASONE [Suspect]
     Indication: RHINITIS SEASONAL
     Route: 045
     Dates: start: 20100816, end: 20100913

REACTIONS (2)
  - Retinal detachment [Unknown]
  - Cataract [Recovered/Resolved]
